FAERS Safety Report 20641387 (Version 1)
Quarter: 2022Q1

REPORT INFORMATION
  Report Type: Spontaneous
  Country: US (occurrence: US)
  Receive Date: 20220328
  Receipt Date: 20220328
  Transmission Date: 20220423
  Serious: No
  Sender: FDA-Public Use
  Company Number: US-CIPLA LTD.-2021US05399

PATIENT

DRUGS (1)
  1. TESTOSTERONE [Suspect]
     Active Substance: TESTOSTERONE
     Indication: Blood testosterone decreased
     Dosage: QUATER OF ML ONCE A WEEK WITH THE HELP OF SYRINGE
     Route: 065

REACTIONS (2)
  - Multiple use of single-use product [Unknown]
  - Product prescribing error [Unknown]
